FAERS Safety Report 8971378 (Version 1)
Quarter: 2012Q4

REPORT INFORMATION
  Report Type: 
  Country: ZA (occurrence: ZA)
  Receive Date: 20121217
  Receipt Date: 20121217
  Transmission Date: 20130627
  Serious: Yes (Other)
  Sender: FDA-Public Use
  Company Number: PHHY2012ZA115293

PATIENT
  Sex: Male

DRUGS (1)
  1. RITALINA [Suspect]
     Route: 064

REACTIONS (3)
  - Restlessness [Not Recovered/Not Resolved]
  - Crying [Not Recovered/Not Resolved]
  - Foetal exposure during pregnancy [Unknown]
